FAERS Safety Report 18831020 (Version 3)
Quarter: 2022Q3

REPORT INFORMATION
  Report Type: Report from Study
  Country: CA (occurrence: CA)
  Receive Date: 20210203
  Receipt Date: 20220712
  Transmission Date: 20221026
  Serious: Yes (Other)
  Sender: FDA-Public Use
  Company Number: CA-GLAXOSMITHKLINE-CA2021AMR020731

PATIENT

DRUGS (1)
  1. MEPOLIZUMAB [Suspect]
     Active Substance: MEPOLIZUMAB
     Indication: Asthma
     Dosage: 100 MG, Z(MONTHS)
     Dates: start: 20180625

REACTIONS (5)
  - Pneumonia [Unknown]
  - Dyspnoea exertional [Recovering/Resolving]
  - Cough [Unknown]
  - Productive cough [Unknown]
  - Fatigue [Unknown]
